FAERS Safety Report 5196031-7 (Version None)
Quarter: 2007Q1

REPORT INFORMATION
  Report Type: 
  Country: None (occurrence: None)
  Receive Date: 20070102
  Receipt Date: 20061219
  Transmission Date: 20070707
  Serious: Yes (Other)
  Sender: FDA-Public Use
  Company Number: PHFR2006GB03590

PATIENT
  Age: 49 Year
  Sex: Male

DRUGS (3)
  1. CLOZARIL [Suspect]
     Indication: SCHIZOPHRENIA
     Dosage: 275MG/DAY
     Route: 048
     Dates: start: 20061107
  2. PROCYCLIDINE HYDROCHLORIDE 2MG TAB [Concomitant]
     Indication: PROPHYLAXIS
     Dosage: 5MG/DAY
     Route: 048
     Dates: start: 20061109
  3. FLUPHENAZINE DECANOATE [Concomitant]
     Dosage: 100MG/2/52
     Route: 030

REACTIONS (2)
  - HYPERCOAGULATION [None]
  - PLATELET COUNT INCREASED [None]
